FAERS Safety Report 8515882-1 (Version None)
Quarter: 2012Q3

REPORT INFORMATION
  Report Type: 
  Country: None (occurrence: None)
  Receive Date: 20120717
  Receipt Date: 20120709
  Transmission Date: 20120928
  Serious: Yes (Hospitalization, Other)
  Sender: FDA-Public Use
  Company Number: US-JNJFOC-20120604963

PATIENT
  Sex: Female

DRUGS (14)
  1. BENICAR [Concomitant]
  2. MULTIVITAMIN [Concomitant]
  3. CALCIUM [Concomitant]
  4. XARELTO [Suspect]
     Indication: KNEE ARTHROPLASTY
     Route: 048
     Dates: start: 20120605
  5. PREVACID [Concomitant]
  6. ASPIRIN [Concomitant]
  7. XARELTO [Suspect]
     Indication: EMBOLISM VENOUS
     Route: 048
     Dates: start: 20120605
  8. LIPITOR [Concomitant]
  9. METHYLDOPA [Concomitant]
  10. LORTAB [Concomitant]
  11. XARELTO [Suspect]
     Indication: THROMBOSIS PROPHYLAXIS
     Route: 048
     Dates: start: 20120605
  12. BYSTOLIC [Concomitant]
  13. NAPROXEN [Concomitant]
  14. FOSAMAX [Concomitant]

REACTIONS (1)
  - CEREBRAL INFARCTION [None]
